FAERS Safety Report 23334692 (Version 3)
Quarter: 2024Q1

REPORT INFORMATION
  Report Type: Other
  Country: US (occurrence: US)
  Receive Date: 20231224
  Receipt Date: 20240210
  Transmission Date: 20240410
  Serious: No
  Sender: FDA-Public Use
  Company Number: US-TRAVERE-2023TVT00798

PATIENT
  Sex: Male
  Weight: 76.7 kg

DRUGS (11)
  1. FILSPARI [Suspect]
     Active Substance: SPARSENTAN
     Indication: IgA nephropathy
     Route: 048
     Dates: start: 20230818
  2. FILSPARI [Suspect]
     Active Substance: SPARSENTAN
     Dosage: 200MG ONCE DAILY FOR DAYS 1-14, THEN?TWO 200MG TABLETS DAILY FOR DAYS 14-30.
     Route: 048
  3. WELLBUTRIN XL [Concomitant]
     Active Substance: BUPROPION HYDROCHLORIDE
     Route: 048
  4. PROCARDIA XL [Concomitant]
     Active Substance: NIFEDIPINE
     Route: 048
  5. KERENDIA [Concomitant]
     Active Substance: FINERENONE
  6. PREDNISONE [Concomitant]
     Active Substance: PREDNISONE
  7. FARXIGA [Concomitant]
     Active Substance: DAPAGLIFLOZIN PROPANEDIOL
  8. LAMICTAL [Concomitant]
     Active Substance: LAMOTRIGINE
  9. MYCOPHENOLATE MOFETIL [Concomitant]
     Active Substance: MYCOPHENOLATE MOFETIL
  10. TACROLIMUS [Concomitant]
     Active Substance: TACROLIMUS
  11. TACROLIMUS [Concomitant]
     Active Substance: TACROLIMUS

REACTIONS (3)
  - Blood pressure decreased [Recovered/Resolved]
  - Abdominal discomfort [Unknown]
  - Pancreatic enzymes decreased [Unknown]
